FAERS Safety Report 5673083-9 (Version None)
Quarter: 2008Q1

REPORT INFORMATION
  Report Type: 
  Country: None (occurrence: None)
  Receive Date: 20080319
  Receipt Date: 20080211
  Transmission Date: 20080703
  Serious: No
  Sender: FDA-Public Use
  Company Number: US-ASTRAZENECA-2008UW02866

PATIENT
  Sex: Female

DRUGS (5)
  1. SYMBICORT [Suspect]
     Route: 055
  2. SINGULAIR [Concomitant]
  3. LISINOPRIL [Concomitant]
  4. XOPENEX [Concomitant]
  5. ALBUTEROL [Concomitant]

REACTIONS (2)
  - ACTIVITIES OF DAILY LIVING IMPAIRED [None]
  - PAIN IN EXTREMITY [None]
